FAERS Safety Report 6335135-X (Version None)
Quarter: 2009Q3

REPORT INFORMATION
  Report Type: 
  Country: None (occurrence: None)
  Receive Date: 20090828
  Receipt Date: 20090828
  Transmission Date: 20100115
  Serious: Yes (Disabling)
  Sender: FDA-Public Use
  Company Number: None

PATIENT
  Age: 58 Year
  Sex: Female
  Weight: 68.0396 kg

DRUGS (2)
  1. COBALT 500 MG [Suspect]
     Indication: ESCHERICHIA INFECTION
     Dosage: 1 TB TWICE DAILY
     Dates: start: 20080217
  2. COBALT 500 MG [Suspect]
     Indication: ESCHERICHIA INFECTION
     Dosage: 1 TB TWICE DAILY
     Dates: start: 20090701

REACTIONS (2)
  - ARTHRALGIA [None]
  - PAIN IN EXTREMITY [None]
